FAERS Safety Report 5178337-0 (Version None)
Quarter: 2006Q4

REPORT INFORMATION
  Report Type: 
  Country: None (occurrence: None)
  Receive Date: 20061208
  Receipt Date: 20061128
  Transmission Date: 20070319
  Serious: Yes (Other)
  Sender: FDA-Public Use
  Company Number: 2006RL000439

PATIENT
  Sex: Female

DRUGS (1)
  1. OMACOR [Suspect]
     Indication: ILL-DEFINED DISORDER
     Dosage: PO
     Route: 048

REACTIONS (2)
  - EYE DISORDER [None]
  - THROMBOSIS [None]
